FAERS Safety Report 25831608 (Version 1)
Quarter: 2025Q3

REPORT INFORMATION
  Report Type: Spontaneous
  Country: MD (occurrence: MD)
  Receive Date: 20250922
  Receipt Date: 20250922
  Transmission Date: 20251021
  Serious: Yes (Life-Threatening, Hospitalization)
  Sender: BAYER HEALTHCARE PHARMACEUTICALS INC.
  Company Number: MD-BAYER-2025A124345

PATIENT
  Age: 66 Year
  Sex: Female
  Weight: 108 kg

DRUGS (1)
  1. ULTRAVIST [Suspect]
     Active Substance: IOPROMIDE
     Indication: Diagnostic procedure
     Route: 042
     Dates: start: 20250908, end: 20250908

REACTIONS (4)
  - Hypotension [Unknown]
  - Bradycardia [Unknown]
  - Eyelid oedema [Unknown]
  - Hyperaemia [Unknown]

NARRATIVE: CASE EVENT DATE: 20250908
